FAERS Safety Report 9668700 (Version 1)
Quarter: 2013Q4

REPORT INFORMATION
  Report Type: Spontaneous
  Country: US (occurrence: US)
  Receive Date: 20131105
  Receipt Date: 20131105
  Transmission Date: 20140711
  Serious: No
  Sender: FDA-Public Use
  Company Number: US-ENDO PHARMACEUTICALS INC.-PRED20130002

PATIENT
  Age: 67 Year
  Sex: Female
  Weight: 65.83 kg

DRUGS (3)
  1. PREDNISONE TABLETS [Suspect]
     Indication: PRODUCT USED FOR UNKNOWN INDICATION
     Dosage: 5-10 G
     Route: 048
  2. JAKAFI [Suspect]
     Indication: MYELOFIBROSIS
     Route: 048
     Dates: start: 20111128, end: 2012
  3. JAKAFI [Suspect]
     Route: 048
     Dates: start: 2012

REACTIONS (2)
  - Neutropenia [Not Recovered/Not Resolved]
  - Weight increased [Not Recovered/Not Resolved]
